FAERS Safety Report 19674471 (Version 1)
Quarter: 2021Q3

REPORT INFORMATION
  Report Type: Spontaneous
  Country: PT (occurrence: PT)
  Receive Date: 20210809
  Receipt Date: 20210809
  Transmission Date: 20211014
  Serious: No
  Sender: FDA-Public Use
  Company Number: PT-ALKEM LABORATORIES LIMITED-PT-ALKEM-2020-05513

PATIENT
  Age: 76 Year
  Sex: Female

DRUGS (2)
  1. ITRACONAZOLE. [Suspect]
     Active Substance: ITRACONAZOLE
     Indication: ALTERNARIA INFECTION
     Dosage: 100 MILLIGRAM, BID
     Route: 065
  2. METHYLPREDNISOLONE. [Concomitant]
     Active Substance: METHYLPREDNISOLONE
     Indication: PRODUCT USED FOR UNKNOWN INDICATION
     Dosage: 4 MILLIGRAM, QD
     Route: 048

REACTIONS (3)
  - Drug ineffective [Unknown]
  - Treatment failure [Unknown]
  - Therapy non-responder [Unknown]
